FAERS Safety Report 4591361-1 (Version None)
Quarter: 2005Q1

REPORT INFORMATION
  Report Type: 
  Country: None (occurrence: None)
  Receive Date: 20050223
  Receipt Date: 20050223
  Transmission Date: 20050727
  Serious: Yes (Other)
  Sender: FDA-Public Use
  Company Number: None

PATIENT
  Age: 77 Year
  Sex: Male
  Weight: 90.7194 kg

DRUGS (8)
  1. OMEPRAZOLE [Suspect]
     Indication: GASTROOESOPHAGEAL REFLUX DISEASE
     Dosage: 1 CAPSULE DAILY
  2. ALLOPURINOL [Concomitant]
  3. HUMULIN 70/30 [Concomitant]
  4. DILTIAZEM HCL [Concomitant]
  5. LIPITOR [Concomitant]
  6. DOXAZOSIN [Concomitant]
  7. HYDROCHLOROTHIAZIDE [Concomitant]
  8. LISINOPRIL [Concomitant]

REACTIONS (4)
  - DISEASE RECURRENCE [None]
  - DRUG INEFFECTIVE [None]
  - GASTROOESOPHAGEAL REFLUX DISEASE [None]
  - PHARMACEUTICAL PRODUCT COMPLAINT [None]
